FAERS Safety Report 10128118 (Version 4)
Quarter: 2017Q4

REPORT INFORMATION
  Report Type: Spontaneous
  Country: JP (occurrence: JP)
  Receive Date: 20140428
  Receipt Date: 20171103
  Transmission Date: 20180320
  Serious: Yes (Hospitalization, Other)
  Sender: FDA-Public Use
  Company Number: JP-UCBSA-118428

PATIENT
  Age: 26 Year
  Sex: Female

DRUGS (4)
  1. TEGRETOL [Suspect]
     Active Substance: CARBAMAZEPINE
     Dosage: 500 MG DAILY
     Route: 048
     Dates: start: 20131205
  2. PHENOBAL [Concomitant]
     Active Substance: PHENOBARBITAL
     Indication: SEIZURE
     Dosage: DAILY DOSE: 100 MG
     Route: 048
     Dates: start: 20061221
  3. E KEPPRA [Suspect]
     Active Substance: LEVETIRACETAM
     Indication: EPILEPSY
     Dosage: 250 MG, 2X/DAY (BID)
     Dates: start: 20140221, end: 20140308
  4. TEGRETOL [Suspect]
     Active Substance: CARBAMAZEPINE
     Indication: SEIZURE
     Dosage: 470 MG DAILY
     Route: 048

REACTIONS (1)
  - Rhabdomyolysis [Recovered/Resolved]

NARRATIVE: CASE EVENT DATE: 20140307
